FAERS Safety Report 5281937-0 (Version None)
Quarter: 2007Q1

REPORT INFORMATION
  Report Type: 
  Country: None (occurrence: None)
  Receive Date: 20070326
  Receipt Date: 20070313
  Transmission Date: 20070707
  Serious: Yes (Hospitalization)
  Sender: FDA-Public Use
  Company Number: GXKR2007IT02589

PATIENT
  Age: 37 Year
  Sex: Male

DRUGS (1)
  1. AMOXICILLIN AND CLAVULANATE POTASSIUM [Suspect]
     Indication: TOOTH ABSCESS
     Dosage: 875+125 MG, BID, ORAL
     Route: 048
     Dates: start: 20070204, end: 20070204

REACTIONS (3)
  - ERYTHEMA [None]
  - EYELID OEDEMA [None]
  - LIP OEDEMA [None]
